FAERS Safety Report 9441838 (Version 1)
Quarter: 2013Q3

REPORT INFORMATION
  Report Type: Spontaneous
  Country: US (occurrence: US)
  Receive Date: 20130806
  Receipt Date: 20130806
  Transmission Date: 20140515
  Serious: No
  Sender: FDA-Public Use
  Company Number: US-PFIZER INC-2013226521

PATIENT
  Age: 60 Year
  Sex: Female
  Weight: 48.98 kg

DRUGS (6)
  1. RAPAMUNE [Suspect]
     Indication: PROPHYLAXIS AGAINST TRANSPLANT REJECTION
     Dosage: 2 MG (BY TAKING 2 TABLETS OF 1MG TOGETHER), 1X/DAY
     Route: 048
     Dates: start: 20121202
  2. MYFORTIC [Concomitant]
     Dosage: 360 MG, UNK
  3. BABY ASPIRIN [Concomitant]
     Dosage: UNK
  4. FUROSEMIDE [Concomitant]
     Dosage: UNK
  5. BACTRIM [Concomitant]
     Dosage: UNK
  6. POTASSIUM [Concomitant]
     Dosage: UNK

REACTIONS (1)
  - Blood cholesterol increased [Unknown]
